FAERS Safety Report 7965358-5 (Version None)
Quarter: 2011Q4

REPORT INFORMATION
  Report Type: 
  Country: None (occurrence: None)
  Receive Date: 20111208
  Receipt Date: 20111204
  Transmission Date: 20120403
  Serious: Yes (Death)
  Sender: FDA-Public Use
  Company Number: PHHY2011US106826

PATIENT
  Age: 42 Year
  Sex: Female

DRUGS (4)
  1. TEGRETOL [Suspect]
     Dosage: UNK UKN, UNK
  2. DILANTIN [Suspect]
     Dosage: UNK UKN, UNK
  3. NEURONTIN [Suspect]
     Dosage: UNK UKN, UNK
  4. CLONAZEPAM [Suspect]

REACTIONS (1)
  - SUDDEN UNEXPLAINED DEATH IN EPILEPSY [None]
